FAERS Safety Report 9347896 (Version 4)
Quarter: 2013Q4

REPORT INFORMATION
  Report Type: Spontaneous
  Country: FR (occurrence: FR)
  Receive Date: 20130614
  Receipt Date: 20131209
  Transmission Date: 20140711
  Serious: Yes (Death, Life-Threatening, Other)
  Sender: FDA-Public Use
  Company Number: FR-009507513-1306FRA004000

PATIENT
  Age: 39 Year
  Sex: Female

DRUGS (8)
  1. EMEND [Suspect]
     Indication: ANTIEMETIC SUPPORTIVE CARE
     Dosage: 125 MG, QD
     Route: 048
     Dates: start: 20130228, end: 20130228
  2. HOLOXAN [Suspect]
     Indication: SARCOMA UTERUS
     Dosage: 8450 MG, ONCE
     Route: 042
     Dates: start: 20130228, end: 20130228
  3. HOLOXAN [Suspect]
     Dosage: UNK
  4. LARGACTIL [Concomitant]
     Indication: ANTIEMETIC SUPPORTIVE CARE
     Dosage: 25 MG, QD
     Route: 042
     Dates: start: 20130228, end: 20130301
  5. MESNA EG [Concomitant]
     Indication: DRUG TOXICITY PROPHYLAXIS
     Dosage: 8450 MG, QD
     Route: 042
     Dates: start: 20130228, end: 20130228
  6. METHYLPREDNISOLONE MYLAN [Concomitant]
     Indication: ANTIEMETIC SUPPORTIVE CARE
     Dosage: 60 MG, QD
     Route: 042
     Dates: start: 20130228, end: 20130228
  7. ZOPHREN (ONDANSETRON HYDROCHLORIDE) [Concomitant]
     Indication: ANTIEMETIC SUPPORTIVE CARE
     Dosage: 8 MG, QD
     Dates: start: 20130228, end: 20130228
  8. OXYNORM [Concomitant]
     Indication: ANALGESIC THERAPY
     Dosage: 70 MG, QD
     Dates: end: 20130301

REACTIONS (3)
  - Agranulocytosis [Fatal]
  - Encephalopathy [Recovering/Resolving]
  - Anaemia [Fatal]
